FAERS Safety Report 25817288 (Version 3)
Quarter: 2025Q4

REPORT INFORMATION
  Report Type: Spontaneous
  Country: IN (occurrence: IN)
  Receive Date: 20250918
  Receipt Date: 20251002
  Transmission Date: 20260118
  Serious: Yes (Other)
  Sender: PFIZER
  Company Number: IN-PFIZER INC-PV202500111844

PATIENT
  Age: 62 Year
  Sex: Male

DRUGS (3)
  1. CRIZOTINIB [Suspect]
     Active Substance: CRIZOTINIB
     Indication: Lung neoplasm malignant
     Dosage: 250 MG, 2X/DAY
     Route: 048
  2. DEXAMETHASONE [Concomitant]
     Active Substance: DEXAMETHASONE
     Dosage: 4 MG, 3X/DAY FOR 1 WEEK
  3. DEXAMETHASONE [Concomitant]
     Active Substance: DEXAMETHASONE
     Dosage: 4 MG, 3X/DAY FOR 1 WEEK

REACTIONS (5)
  - Paralysis [Unknown]
  - Metastases to central nervous system [Unknown]
  - Lung neoplasm malignant [Unknown]
  - Malignant neoplasm progression [Unknown]
  - Asthenia [Unknown]
